FAERS Safety Report 15889192 (Version 1)
Quarter: 2019Q1

REPORT INFORMATION
  Report Type: Spontaneous
  Country: US (occurrence: US)
  Receive Date: 20190107
  Receipt Date: 20190107
  Transmission Date: 20190417
  Serious: No
  Sender: FDA-Public Use
  Company Number: None

PATIENT
  Age: 57 Year
  Sex: Female

DRUGS (1)
  1. STELARA [Suspect]
     Active Substance: USTEKINUMAB
     Indication: MYOCARDITIS POST INFECTION
     Route: 058
     Dates: start: 20171129

REACTIONS (1)
  - Head titubation [None]

NARRATIVE: CASE EVENT DATE: 20181225
